FAERS Safety Report 7421184-7 (Version None)
Quarter: 2011Q2

REPORT INFORMATION
  Report Type: 
  Country: None (occurrence: None)
  Receive Date: 20110418
  Receipt Date: 20110325
  Transmission Date: 20111010
  Serious: No
  Sender: FDA-Public Use
  Company Number: US-B.I. PHARMACEUTICALS,INC./RIDGEFIELD-2011-BP-03152BP

PATIENT
  Sex: Female

DRUGS (6)
  1. PRADAXA [Suspect]
     Indication: ATRIAL FIBRILLATION
     Dosage: 300 MG
     Route: 048
     Dates: start: 20110116, end: 20110301
  2. TOPROL-XL [Concomitant]
     Indication: HYPERTENSION
     Dosage: 25 MG
     Route: 048
  3. XANAX [Concomitant]
     Indication: ANXIETY
     Dosage: 0.5 MG
     Route: 048
  4. PRADAXA [Suspect]
     Indication: DRUG THERAPY CHANGED
     Dosage: 300 MG
     Route: 048
     Dates: start: 20110301
  5. TOPROL-XL [Concomitant]
     Indication: ATRIAL FIBRILLATION
  6. XANAX [Concomitant]
     Indication: SLEEP DISORDER

REACTIONS (9)
  - OEDEMA PERIPHERAL [None]
  - PAIN IN EXTREMITY [None]
  - DYSPEPSIA [None]
  - MALAISE [None]
  - CHEST DISCOMFORT [None]
  - HYPOAESTHESIA [None]
  - ABDOMINAL PAIN UPPER [None]
  - DIARRHOEA [None]
  - RASH [None]
